FAERS Safety Report 5170680-4 (Version None)
Quarter: 2006Q4

REPORT INFORMATION
  Report Type: 
  Country: None (occurrence: None)
  Receive Date: 20060919
  Receipt Date: 20060703
  Transmission Date: 20070319
  Serious: No
  Sender: FDA-Public Use
  Company Number: 2006US001508

PATIENT
  Age: 70 Year
  Sex: Male

DRUGS (3)
  1. VESICARE [Suspect]
     Indication: HYPERTONIC BLADDER
     Dosage: 10 MG, UID/QD, ORAL
     Route: 048
     Dates: start: 20060626
  2. GABAPENTIN [Concomitant]
  3. LISINOPRIL (LISINOPRIL DIHYDRATE) [Concomitant]

REACTIONS (2)
  - DRUG INEFFECTIVE [None]
  - DYSPEPSIA [None]
